FAERS Safety Report 4408875-7 (Version None)
Quarter: 2004Q3

REPORT INFORMATION
  Report Type: 
  Country: None (occurrence: None)
  Receive Date: 20040727
  Receipt Date: 20040629
  Transmission Date: 20050211
  Serious: No
  Sender: FDA-Public Use
  Company Number: ZA-GLAXOSMITHKLINE-B0338333A

PATIENT
  Age: 27 Year
  Sex: Female
  Weight: 58 kg

DRUGS (3)
  1. ZYBAN [Suspect]
     Indication: SMOKING CESSATION THERAPY
     Dosage: 150MG TWICE PER DAY
     Route: 048
     Dates: start: 20030901, end: 20030910
  2. ELTROXIN [Concomitant]
     Indication: HYPOTHYROIDISM
     Dosage: .2MG PER DAY
     Route: 048
     Dates: start: 19900101
  3. TRIPHASIL-21 [Concomitant]
     Route: 048
     Dates: start: 19950401, end: 20040401

REACTIONS (3)
  - ANXIETY [None]
  - DIZZINESS [None]
  - PALPITATIONS [None]
